FAERS Safety Report 8581812-X (Version None)
Quarter: 2012Q3

REPORT INFORMATION
  Report Type: 
  Country: None (occurrence: None)
  Receive Date: 20120809
  Receipt Date: 20120730
  Transmission Date: 20120928
  Serious: Yes (Other)
  Sender: FDA-Public Use
  Company Number: PHHY2011CA77701

PATIENT
  Sex: Female

DRUGS (5)
  1. ZOPICLONE [Concomitant]
     Dosage: 5 MG, AT BED TIME
  2. GILENYA [Suspect]
     Indication: MULTIPLE SCLEROSIS
     Dosage: 0.5 MG, QD
     Route: 048
     Dates: start: 20110825, end: 20110830
  3. ESTROGEL [Concomitant]
     Dosage: 1 DF, BID
  4. VITAMIN D [Concomitant]
     Dosage: 1 DF, BID
  5. CALCIUM [Concomitant]
     Dosage: 1 DF, BID

REACTIONS (19)
  - BRADYCARDIA [None]
  - NYSTAGMUS [None]
  - EXTENSOR PLANTAR RESPONSE [None]
  - DIZZINESS [None]
  - ABDOMINAL PAIN UPPER [None]
  - TREMOR [None]
  - DYSPNOEA [None]
  - NAUSEA [None]
  - GAIT DISTURBANCE [None]
  - DIARRHOEA [None]
  - CLUSTER HEADACHE [None]
  - MICTURITION URGENCY [None]
  - URINARY INCONTINENCE [None]
  - FATIGUE [None]
  - OPHTHALMOPLEGIA [None]
  - COORDINATION ABNORMAL [None]
  - MUSCULAR WEAKNESS [None]
  - HYPOAESTHESIA [None]
  - ASTHENIA [None]
